FAERS Safety Report 12213519 (Version 1)
Quarter: 2016Q1

REPORT INFORMATION
  Report Type: Spontaneous
  Country: JP (occurrence: JP)
  Receive Date: 20160328
  Receipt Date: 20160328
  Transmission Date: 20160526
  Serious: Yes (Life-Threatening, Hospitalization)
  Sender: FDA-Public Use
  Company Number: JP-ELI_LILLY_AND_COMPANY-JP201509010059

PATIENT
  Age: 68 Year
  Sex: Male
  Weight: 53.3 kg

DRUGS (7)
  1. PACLITAXEL. [Suspect]
     Active Substance: PACLITAXEL
     Indication: GASTRIC CANCER
     Dosage: 80 MG/M2, OTHER
     Route: 042
     Dates: start: 20150819
  2. GRANISETRON [Concomitant]
     Active Substance: GRANISETRON
     Dosage: 1 MG, UNK
     Route: 042
     Dates: start: 20150819, end: 20151001
  3. PACLITAXEL. [Suspect]
     Active Substance: PACLITAXEL
     Dosage: 80 MG/M2, UNK
     Route: 042
     Dates: start: 20151113
  4. CYRAMZA [Suspect]
     Active Substance: RAMUCIRUMAB
     Indication: GASTRIC CANCER
     Dosage: 8 MG/M2, OTHER
     Route: 042
     Dates: start: 20150819, end: 20151001
  5. PACLITAXEL. [Suspect]
     Active Substance: PACLITAXEL
     Dosage: 64 MG/M2, OTHER
     Route: 042
     Dates: start: 20150916, end: 20151001
  6. DECADRON [Concomitant]
     Active Substance: DEXAMETHASONE
     Dosage: 16.5 MG, UNK
     Route: 042
     Dates: start: 20150819, end: 20151001
  7. DIPHENHYDRAMINE HYDROCHLORIDE. [Concomitant]
     Active Substance: DIPHENHYDRAMINE HYDROCHLORIDE
     Dosage: 50 MG, UNK
     Route: 048
     Dates: start: 20150819, end: 20151001

REACTIONS (3)
  - Peritonitis [Recovered/Resolved]
  - Large intestine perforation [Recovered/Resolved]
  - Malaise [Unknown]

NARRATIVE: CASE EVENT DATE: 20150819
